FAERS Safety Report 21855406 (Version 1)
Quarter: 2023Q1

REPORT INFORMATION
  Report Type: Spontaneous
  Country: FR (occurrence: FR)
  Receive Date: 20230112
  Receipt Date: 20230112
  Transmission Date: 20230418
  Serious: Yes (Hospitalization)
  Sender: FDA-Public Use
  Company Number: None

PATIENT
  Age: 60 Year
  Sex: Female
  Weight: 46.1 kg

DRUGS (4)
  1. ACETAMINOPHEN\OPIUM [Suspect]
     Active Substance: ACETAMINOPHEN\OPIUM
     Indication: Pain in extremity
     Dosage: SELON BESOIN, JUSQU^? 3/J
     Route: 048
     Dates: start: 201811, end: 20190717
  2. NEURONTIN [Suspect]
     Active Substance: GABAPENTIN
     Indication: Pain in extremity
     Dosage: 3 DF, 1X/DAY
     Route: 048
     Dates: start: 201905, end: 20190717
  3. POTASSIUM CHLORIDE [Concomitant]
     Active Substance: POTASSIUM CHLORIDE
     Dosage: UNK
     Route: 065
  4. EFFERALGAN CODEIN [Concomitant]
     Dosage: UNK
     Route: 065

REACTIONS (3)
  - Memory impairment [Recovered/Resolved]
  - Clonus [Recovered/Resolved]
  - Nausea [Recovered/Resolved]

NARRATIVE: CASE EVENT DATE: 20190701
